FAERS Safety Report 9891820 (Version 1)
Quarter: 2014Q1

REPORT INFORMATION
  Report Type: Spontaneous
  Country: US (occurrence: US)
  Receive Date: 20140212
  Receipt Date: 20140212
  Transmission Date: 20141002
  Serious: Yes (Death, Other)
  Sender: FDA-Public Use
  Company Number: US-PFIZER INC-2014037057

PATIENT
  Age: 67 Year
  Sex: Male

DRUGS (4)
  1. MORPHINE SULFATE [Suspect]
     Indication: PAIN
     Dosage: UNK
     Route: 065
     Dates: start: 20120226
  2. OXYCODONE HYDROCHLORIDE [Suspect]
     Indication: PAIN
     Dosage: UNK
     Route: 048
     Dates: start: 20120226
  3. OXYMORPHONE [Suspect]
     Indication: PAIN
     Dosage: UNK
     Route: 065
  4. VALIUM [Concomitant]
     Dosage: UNK
     Dates: start: 20120226

REACTIONS (4)
  - Overdose [Fatal]
  - Haemoptysis [Unknown]
  - Unresponsive to stimuli [Unknown]
  - Wrong technique in drug usage process [Unknown]
